FAERS Safety Report 13956412 (Version 3)
Quarter: 2018Q3

REPORT INFORMATION
  Report Type: Spontaneous
  Country: GB (occurrence: GB)
  Receive Date: 20170911
  Receipt Date: 20180718
  Transmission Date: 20181010
  Serious: Yes (Hospitalization, Other)
  Sender: FDA-Public Use
  Company Number: GB-MYLANLABS-2017M1056036

PATIENT
  Age: 40 Year
  Sex: Female

DRUGS (2)
  1. CLOZARIL [Suspect]
     Active Substance: CLOZAPINE
     Dosage: UNK
     Route: 048
     Dates: start: 20170124
  2. CLOZARIL [Suspect]
     Active Substance: CLOZAPINE
     Indication: SCHIZOPHRENIA
     Dosage: UNK
     Route: 048
     Dates: start: 20170121

REACTIONS (15)
  - High density lipoprotein decreased [Not Recovered/Not Resolved]
  - Therapy cessation [Unknown]
  - Glycosylated haemoglobin increased [Recovering/Resolving]
  - C-reactive protein increased [Recovered/Resolved]
  - Lymphocyte count increased [Recovered/Resolved]
  - Vitamin B12 increased [Unknown]
  - Mean cell haemoglobin concentration decreased [Unknown]
  - Thrombocytopenia [Recovering/Resolving]
  - Blood triglycerides increased [Recovered/Resolved]
  - Treatment noncompliance [Unknown]
  - Alanine aminotransferase increased [Recovered/Resolved]
  - Blood prolactin increased [Unknown]
  - White blood cell count increased [Recovered/Resolved]
  - Blood cholesterol increased [Recovered/Resolved]
  - Blood glucose increased [Unknown]

NARRATIVE: CASE EVENT DATE: 2017
